FAERS Safety Report 9781853 (Version 1)
Quarter: 2013Q4

REPORT INFORMATION
  Report Type: Spontaneous
  Country: US (occurrence: US)
  Receive Date: 20131225
  Receipt Date: 20131225
  Transmission Date: 20140711
  Serious: No
  Sender: FDA-Public Use
  Company Number: US-009507513-1312USA010188

PATIENT
  Age: 17 Year
  Sex: Female
  Weight: 54.42 kg

DRUGS (1)
  1. NEXPLANON [Suspect]
     Indication: PREGNANCY
     Dosage: ONE ROD INSERTED, EVERY THREE YEARS
     Route: 059
     Dates: start: 201308

REACTIONS (1)
  - Migraine [Recovering/Resolving]
